FAERS Safety Report 9633841 (Version 3)
Quarter: 2013Q4

REPORT INFORMATION
  Report Type: Spontaneous
  Country: AU (occurrence: AU)
  Receive Date: 20131021
  Receipt Date: 20131204
  Transmission Date: 20140711
  Serious: Yes (Other)
  Sender: FDA-Public Use
  Company Number: AU-ASTRAZENECA-2012SE61026

PATIENT
  Age: 29878 Day
  Sex: Male

DRUGS (5)
  1. ZOLADEX [Suspect]
     Route: 058
     Dates: start: 20121001
  2. ZOLADEX [Suspect]
     Route: 058
     Dates: start: 20130208
  3. PREDNISONE [Concomitant]
  4. PYRALIN [Concomitant]
  5. PLAQUENIL [Concomitant]

REACTIONS (12)
  - Pulmonary oedema [Unknown]
  - Local swelling [Recovered/Resolved]
  - Joint swelling [Not Recovered/Not Resolved]
  - Local swelling [Recovered/Resolved]
  - Arthritis [Unknown]
  - Pain in extremity [Not Recovered/Not Resolved]
  - Gait disturbance [Not Recovered/Not Resolved]
  - Polyarthritis [Unknown]
  - General physical health deterioration [Not Recovered/Not Resolved]
  - Depressed mood [Not Recovered/Not Resolved]
  - Weight increased [Unknown]
  - Hot flush [Not Recovered/Not Resolved]
